FAERS Safety Report 6189960-9 (Version None)
Quarter: 2009Q2

REPORT INFORMATION
  Report Type: 
  Country: None (occurrence: None)
  Receive Date: 20090514
  Receipt Date: 20090504
  Transmission Date: 20091009
  Serious: Yes (Other)
  Sender: FDA-Public Use
  Company Number: PHHY2009FR16922

PATIENT
  Sex: Male

DRUGS (5)
  1. LEPONEX [Suspect]
     Indication: SCHIZOPHRENIA
     Dosage: 400 MG/DAY
     Dates: start: 20090305, end: 20090410
  2. ABILIFY [Concomitant]
     Indication: SCHIZOPHRENIA
     Dosage: 30 MG/DAY
  3. ABILIFY [Concomitant]
     Indication: DELUSION
  4. HALDOL [Concomitant]
     Dosage: 100 DROPS/DAY
  5. HALDOL [Concomitant]
     Dosage: 15 DROPS/DAY

REACTIONS (1)
  - BLOOD CREATININE INCREASED [None]
